FAERS Safety Report 7052047-7 (Version None)
Quarter: 2010Q4

REPORT INFORMATION
  Report Type: 
  Country: None (occurrence: None)
  Receive Date: 20101018
  Receipt Date: 20101018
  Transmission Date: 20110411
  Serious: Yes (Hospitalization)
  Sender: FDA-Public Use
  Company Number: None

PATIENT
  Sex: Female
  Weight: 52.4 kg

DRUGS (8)
  1. CYCLOPHOSPHAMIDE [Suspect]
     Dosage: 1161 MG
  2. DOXORUBICIN HCL [Suspect]
     Dosage: 77 MG
  3. PREDNISONE [Suspect]
     Dosage: 50 MG
  4. RITUXIMAB (MOAB C2B8 ANTI CD 20, CHIMERIC) [Suspect]
     Dosage: 580 MG
  5. VINCRISTINE SULFATE [Suspect]
     Dosage: 2 MG
  6. DECADRON [Concomitant]
  7. MIRALAX [Concomitant]
  8. SENNA [Concomitant]

REACTIONS (7)
  - DECUBITUS ULCER [None]
  - DIARRHOEA [None]
  - ENTEROCOCCAL INFECTION [None]
  - HERPES ZOSTER [None]
  - LOCALISED INFECTION [None]
  - PERINEAL ULCERATION [None]
  - SEPSIS [None]
